FAERS Safety Report 11749345 (Version 14)
Quarter: 2018Q2

REPORT INFORMATION
  Report Type: Spontaneous
  Country: US (occurrence: US)
  Receive Date: 20151118
  Receipt Date: 20180427
  Transmission Date: 20180711
  Serious: Yes (Hospitalization, Congenital Anomaly, Other)
  Sender: FDA-Public Use
  Company Number: PHEH2015US023774

PATIENT
  Sex: Male

DRUGS (3)
  1. ONDANSETRON HYDROCHLORIDE. [Suspect]
     Active Substance: ONDANSETRON HYDROCHLORIDE
     Indication: FOETAL EXPOSURE DURING PREGNANCY
     Route: 064
  2. ZOFRAN [Suspect]
     Active Substance: ONDANSETRON HYDROCHLORIDE
     Indication: FOETAL EXPOSURE DURING PREGNANCY
     Route: 064
  3. ONDANSETRON TEVA//ONDANSETRON [Suspect]
     Active Substance: ONDANSETRON
     Indication: FOETAL EXPOSURE DURING PREGNANCY
     Dosage: MOTHER^S DOSE: 4 MG, PRN
     Route: 064

REACTIONS (86)
  - Heart disease congenital [Unknown]
  - Univentricular heart [Unknown]
  - Congenital anomaly [Unknown]
  - Phimosis [Unknown]
  - Spleen malformation [Unknown]
  - Hypokalaemia [Unknown]
  - Foetal exposure during pregnancy [Unknown]
  - Sepsis neonatal [Unknown]
  - Erythema [Unknown]
  - Papule [Unknown]
  - Gastrooesophageal reflux disease [Unknown]
  - Language disorder [Unknown]
  - Muscular weakness [Unknown]
  - Double outlet right ventricle [Unknown]
  - Congenital pancreatic anomaly [Unknown]
  - Umbilical cord around neck [Unknown]
  - Premature baby [Unknown]
  - Pericardial effusion [Unknown]
  - Emotional distress [Unknown]
  - Urinary tract infection [Unknown]
  - Fine motor delay [Unknown]
  - Posture abnormal [Unknown]
  - Ventricular septal defect [Unknown]
  - Right-to-left cardiac shunt [Unknown]
  - Anomalous pulmonary venous connection [Unknown]
  - Left-to-right cardiac shunt [Unknown]
  - Dysmorphism [Unknown]
  - Pyrexia [Unknown]
  - Haemorrhage intracranial [Unknown]
  - Venous occlusion [Unknown]
  - Device related infection [Unknown]
  - Pain [Unknown]
  - Injury [Unknown]
  - Cough [Unknown]
  - Bronchitis [Unknown]
  - Cardiomegaly [Unknown]
  - Congenital aortic valve incompetence [Unknown]
  - Dyspnoea [Unknown]
  - Bradycardia [Unknown]
  - Acute kidney injury [Unknown]
  - Pulmonary oedema neonatal [Unknown]
  - Otitis media acute [Unknown]
  - Rhinorrhoea [Unknown]
  - Anaemia neonatal [Unknown]
  - Right ventricular hypertrophy [Unknown]
  - Transposition of the great vessels [Unknown]
  - Respiratory distress [Unknown]
  - Cardiac failure [Unknown]
  - Device dislocation [Unknown]
  - Deformity [Unknown]
  - Anhedonia [Unknown]
  - Anxiety [Unknown]
  - Dextrocardia [Unknown]
  - Ventricular hypoplasia [Unknown]
  - Neonatal tachypnoea [Unknown]
  - Neonatal hyponatraemia [Unknown]
  - Jaundice neonatal [Unknown]
  - Right atrial dilatation [Unknown]
  - Hiatus hernia [Unknown]
  - Failure to thrive [Unknown]
  - Hyperbilirubinaemia neonatal [Unknown]
  - Developmental delay [Unknown]
  - Cardiac murmur [Unknown]
  - Rhinitis allergic [Unknown]
  - Malnutrition [Unknown]
  - Feeding intolerance [Unknown]
  - Asthma [Unknown]
  - Heterotaxia [Unknown]
  - Atrial septal defect [Unknown]
  - Cardiac malposition [Unknown]
  - Staphylococcal infection [Unknown]
  - Respiratory arrest [Unknown]
  - Respiratory failure [Unknown]
  - Gross motor delay [Unknown]
  - Feeding disorder [Unknown]
  - Tracheitis [Unknown]
  - Diarrhoea [Unknown]
  - Food aversion [Unknown]
  - Atrioventricular septal defect [Unknown]
  - Right ventricular dilatation [Unknown]
  - Pulmonary vein occlusion [Unknown]
  - Neonatal hypoxia [Unknown]
  - Pulmonary congestion [Unknown]
  - Hypocalcaemia [Unknown]
  - Sinus tachycardia [Unknown]
  - Peripheral venous disease [Unknown]
